FAERS Safety Report 18522136 (Version 1)
Quarter: 2020Q4

REPORT INFORMATION
  Report Type: Spontaneous
  Country: BR (occurrence: BR)
  Receive Date: 20201119
  Receipt Date: 20201119
  Transmission Date: 20210114
  Serious: Yes (Other)
  Sender: FDA-Public Use
  Company Number: NVSC2020BR306462

PATIENT
  Sex: Male

DRUGS (1)
  1. COSENTYX [Suspect]
     Active Substance: SECUKINUMAB
     Indication: PSORIATIC ARTHROPATHY
     Dosage: 150 UNK, BID (150MG/ML X2)
     Route: 065
     Dates: start: 202005, end: 202009

REACTIONS (5)
  - Arthralgia [Not Recovered/Not Resolved]
  - Pain [Recovering/Resolving]
  - Oedema peripheral [Recovering/Resolving]
  - Drug ineffective [Unknown]
  - Polyarthritis [Recovering/Resolving]
